FAERS Safety Report 7958165-0 (Version None)
Quarter: 2011Q4

REPORT INFORMATION
  Report Type: 
  Country: None (occurrence: None)
  Receive Date: 20111205
  Receipt Date: 20111202
  Transmission Date: 20120403
  Serious: Yes (Other)
  Sender: FDA-Public Use
  Company Number: US-PFIZER INC-2011209688

PATIENT
  Sex: Female

DRUGS (4)
  1. LORAZEPAM [Concomitant]
     Indication: SLEEP DISORDER
  2. LORAZEPAM [Concomitant]
     Indication: ANXIETY DISORDER
     Dosage: UNK
     Dates: start: 20080113
  3. GEODON [Suspect]
     Indication: BIPOLAR I DISORDER
     Dosage: 40 MG
     Dates: start: 20070131
  4. GEODON [Suspect]
     Dosage: 60 MG
     Route: 048

REACTIONS (1)
  - VIITH NERVE PARALYSIS [None]
